FAERS Safety Report 8848814 (Version 3)
Quarter: 2013Q1

REPORT INFORMATION
  Report Type: Spontaneous
  Country: US (occurrence: None)
  Receive Date: 20121015
  Receipt Date: 20121231
  Transmission Date: 20140127
  Serious: Yes (Other)
  Sender: FDA-Public Use
  Company Number: 2012P1060766

PATIENT
  Age: 16 Year
  Sex: Female

DRUGS (1)
  1. MYORISAN [Suspect]
     Indication: ACNE
     Dates: start: 20120830, end: 20121001

REACTIONS (7)
  - Treatment noncompliance [None]
  - Vaginal haemorrhage [None]
  - Muscle spasms [None]
  - Pregnancy [None]
  - Exposure during pregnancy [None]
  - Inappropriate schedule of drug administration [None]
  - Abortion spontaneous [None]
